FAERS Safety Report 10556610 (Version 2)
Quarter: 2014Q4

REPORT INFORMATION
  Report Type: Spontaneous
  Country: JP (occurrence: JP)
  Receive Date: 20141031
  Receipt Date: 20141031
  Transmission Date: 20150529
  Serious: Yes (Other)
  Sender: FDA-Public Use
  Company Number: PHHY2014JP056754

PATIENT
  Age: 63 Year
  Sex: Male
  Weight: 50 kg

DRUGS (3)
  1. CLOZARIL [Suspect]
     Active Substance: CLOZAPINE
     Indication: SCHIZOPHRENIA
     Dosage: 150 MG, DAILY
     Route: 048
     Dates: start: 20140311, end: 20140501
  2. PURSENIDE [Concomitant]
     Active Substance: SENNOSIDES A AND B
     Indication: INTERSTITIAL LUNG DISEASE
     Dosage: 12 MG, UNK
     Route: 048
  3. DEPAKENE [Concomitant]
     Active Substance: VALPROIC ACID
     Indication: INTERSTITIAL LUNG DISEASE
     Dosage: 400 MG, UNK
     Route: 048

REACTIONS (11)
  - Haemoglobin decreased [Not Recovered/Not Resolved]
  - Emphysema [Not Recovered/Not Resolved]
  - Blood alkaline phosphatase increased [Not Recovered/Not Resolved]
  - Inflammation [Recovering/Resolving]
  - Carcinoembryonic antigen increased [Unknown]
  - Interstitial lung disease [Recovering/Resolving]
  - Haematocrit decreased [Not Recovered/Not Resolved]
  - Pyrexia [Recovering/Resolving]
  - Lymphocyte count decreased [Recovered/Resolved]
  - Blood creatine phosphokinase decreased [Not Recovered/Not Resolved]
  - Blood creatinine decreased [Not Recovered/Not Resolved]

NARRATIVE: CASE EVENT DATE: 20140428
